FAERS Safety Report 5940379-2 (Version None)
Quarter: 2008Q4

REPORT INFORMATION
  Report Type: 
  Country: None (occurrence: None)
  Receive Date: 20081104
  Receipt Date: 20081022
  Transmission Date: 20090506
  Serious: Yes (Other)
  Sender: FDA-Public Use
  Company Number: CA-ROCHE-588433

PATIENT
  Sex: Female

DRUGS (3)
  1. XELODA [Suspect]
     Dosage: REGIMEN: 14 DAYS THERAPY, 7 DAYS REST AND REPEAT
     Route: 048
     Dates: start: 20070901, end: 20070901
  2. XELODA [Suspect]
     Dosage: REGIMEN: 14 DAYS THERAPY, 7 DAYS REST AND REPEAT
     Route: 048
     Dates: start: 20070901, end: 20081014
  3. GEMCITABINE HCL [Concomitant]
     Route: 042

REACTIONS (5)
  - CANDIDIASIS [None]
  - LIP SWELLING [None]
  - PALMAR-PLANTAR ERYTHRODYSAESTHESIA SYNDROME [None]
  - STOMATITIS [None]
  - WHITE BLOOD CELL COUNT DECREASED [None]
